FAERS Safety Report 5665097-X (Version None)
Quarter: 2008Q1

REPORT INFORMATION
  Report Type: 
  Country: None (occurrence: None)
  Receive Date: 20080314
  Receipt Date: 20080304
  Transmission Date: 20080703
  Serious: Yes (Other)
  Sender: FDA-Public Use
  Company Number: US-PFIZER INC-2008021051

PATIENT
  Sex: Female
  Weight: 86.363 kg

DRUGS (5)
  1. NEURONTIN [Suspect]
     Indication: PAIN
  2. LYRICA [Suspect]
     Dates: start: 20080222, end: 20080301
  3. GABAPENTIN [Suspect]
  4. CLARINEX [Concomitant]
  5. GUAIFENESIN [Concomitant]

REACTIONS (19)
  - ABDOMINAL SYMPTOM [None]
  - BODY HEIGHT DECREASED [None]
  - DIZZINESS [None]
  - DRUG INEFFECTIVE [None]
  - EAR DISCOMFORT [None]
  - EYELID OEDEMA [None]
  - FATIGUE [None]
  - FEELING ABNORMAL [None]
  - FLUID RETENTION [None]
  - GASTRIC DISORDER [None]
  - HEADACHE [None]
  - HYPOAESTHESIA [None]
  - IRRITABILITY [None]
  - OEDEMA [None]
  - PAIN [None]
  - PHARMACEUTICAL PRODUCT COMPLAINT [None]
  - SENSATION OF PRESSURE [None]
  - SWELLING [None]
  - TINNITUS [None]
